FAERS Safety Report 5176885-0 (Version None)
Quarter: 2006Q4

REPORT INFORMATION
  Report Type: 
  Country: None (occurrence: None)
  Receive Date: 20061218
  Receipt Date: 20061204
  Transmission Date: 20070319
  Serious: Yes (Hospitalization)
  Sender: FDA-Public Use
  Company Number: PHRM2006FR03234

PATIENT
  Age: 69 Year
  Sex: Female
  Weight: 55 kg

DRUGS (4)
  1. LOPRIL [Concomitant]
     Dates: start: 20050101
  2. TANAKAN [Suspect]
     Dosage: 3 DF, BID
     Route: 048
     Dates: end: 20060515
  3. PROZAC [Concomitant]
     Dosage: 20 MG, QD
     Route: 048
     Dates: start: 20060303, end: 20060530
  4. LAMISIL [Suspect]
     Dosage: 250 MG, QD
     Route: 048
     Dates: start: 20060303, end: 20060515

REACTIONS (11)
  - ALANINE AMINOTRANSFERASE INCREASED [None]
  - BACK PAIN [None]
  - BALANCE DISORDER [None]
  - BRONCHITIS [None]
  - CONFUSIONAL STATE [None]
  - CYTOLYTIC HEPATITIS [None]
  - HAEMOPTYSIS [None]
  - MEMORY IMPAIRMENT [None]
  - NERVOUS SYSTEM DISORDER [None]
  - PULMONARY GRANULOMA [None]
  - THROMBOCYTOPENIA [None]
